FAERS Safety Report 13515705 (Version 1)
Quarter: 2017Q2

REPORT INFORMATION
  Report Type: Spontaneous
  Country: FR (occurrence: FR)
  Receive Date: 20170504
  Receipt Date: 20170504
  Transmission Date: 20170830
  Serious: Yes (Hospitalization, Other)
  Sender: FDA-Public Use
  Company Number: FR-AMGEN-FRASP2017067784

PATIENT
  Age: 19 Year
  Sex: Male

DRUGS (1)
  1. ENBREL [Suspect]
     Active Substance: ETANERCEPT
     Indication: PRODUCT USED FOR UNKNOWN INDICATION
     Dosage: 50 MG, WEEKLY
     Route: 058
     Dates: start: 20151207, end: 20160605

REACTIONS (10)
  - Cholestatic liver injury [Unknown]
  - Epistaxis [Unknown]
  - Hypercalcaemia [Recovered/Resolved]
  - Polydipsia [Recovered/Resolved]
  - Rectal haemorrhage [Unknown]
  - Renal failure [Recovered/Resolved]
  - Hilar lymphadenopathy [Recovered/Resolved]
  - Sarcoidosis [Recovered/Resolved]
  - Inflammatory bowel disease [Unknown]
  - Angiotensin converting enzyme increased [Unknown]

NARRATIVE: CASE EVENT DATE: 20160616
